FAERS Safety Report 20114065 (Version 3)
Quarter: 2021Q4

REPORT INFORMATION
  Report Type: Spontaneous
  Country: JP (occurrence: JP)
  Receive Date: 20211125
  Receipt Date: 20211214
  Transmission Date: 20220303
  Serious: Yes (Hospitalization)
  Sender: FDA-Public Use
  Company Number: JP-TEVA-2021-JP-1979916

PATIENT
  Age: 39 Year
  Sex: Male

DRUGS (2)
  1. PREGABALIN [Suspect]
     Active Substance: PREGABALIN
     Indication: Neuralgia
     Dosage: 600 MILLIGRAM DAILY;
     Route: 065
  2. CELECOXIB [Concomitant]
     Active Substance: CELECOXIB
     Indication: Neuralgia
     Dosage: 200 MILLIGRAM DAILY;
     Route: 065

REACTIONS (7)
  - Dyspnoea [Recovered/Resolved]
  - Decreased appetite [Recovered/Resolved]
  - Insomnia [Recovered/Resolved]
  - Anxiety [Recovered/Resolved]
  - Palpitations [Recovered/Resolved]
  - Restlessness [Unknown]
  - Withdrawal syndrome [Unknown]
